FAERS Safety Report 5013912-5 (Version None)
Quarter: 2006Q2

REPORT INFORMATION
  Report Type: 
  Country: None (occurrence: None)
  Receive Date: 20060525
  Receipt Date: 20060517
  Transmission Date: 20061013
  Serious: Yes (Hospitalization)
  Sender: FDA-Public Use
  Company Number: 2006-01233

PATIENT
  Age: 49 Year
  Sex: Female

DRUGS (2)
  1. VELCADE [Suspect]
     Indication: AMYLOIDOSIS
     Dates: end: 20060516
  2. THALIDOMIDE [Concomitant]

REACTIONS (3)
  - FALL [None]
  - MYOCLONUS [None]
  - NEUROPATHY PERIPHERAL [None]
